FAERS Safety Report 9904690 (Version 2)
Quarter: 2014Q1

REPORT INFORMATION
  Report Type: Spontaneous
  Country: US (occurrence: US)
  Receive Date: 20140218
  Receipt Date: 20140313
  Transmission Date: 20141002
  Serious: No
  Sender: FDA-Public Use
  Company Number: US-JNJFOC-20140208272

PATIENT
  Age: 41 Year
  Sex: Female
  Weight: 81.65 kg

DRUGS (6)
  1. DURAGESIC [Suspect]
     Indication: BACK PAIN
     Route: 062
  2. DURAGESIC [Suspect]
     Indication: BACK PAIN
     Route: 062
     Dates: start: 20140207, end: 20140207
  3. NORCO [Concomitant]
     Indication: PAIN
     Dosage: 10-325MG, AS NEEDED
     Route: 048
  4. EFFEXOR XR [Concomitant]
     Indication: ANTIDEPRESSANT THERAPY
     Route: 048
  5. TOVIAZ [Concomitant]
     Indication: BLADDER DISORDER
     Route: 048
  6. SYNTHROID [Concomitant]
     Indication: THYROID DISORDER
     Route: 048

REACTIONS (13)
  - Logorrhoea [Recovered/Resolved]
  - Poor quality drug administered [Unknown]
  - Overdose [Unknown]
  - Nausea [Recovered/Resolved]
  - Malaise [Recovered/Resolved]
  - Vomiting [Recovered/Resolved]
  - Dizziness [Recovered/Resolved]
  - Pruritus [Recovered/Resolved]
  - Energy increased [Not Recovered/Not Resolved]
  - Drug effect increased [Not Recovered/Not Resolved]
  - Restlessness [Recovered/Resolved]
  - Drug dose omission [Unknown]
  - Product quality issue [Unknown]
